FAERS Safety Report 20703305 (Version 1)
Quarter: 2022Q2

REPORT INFORMATION
  Report Type: Spontaneous
  Country: US (occurrence: US)
  Receive Date: 20220413
  Receipt Date: 20220413
  Transmission Date: 20220720
  Serious: Yes (Other)
  Sender: FDA-Public Use
  Company Number: US-AUROBINDO-AUR-APL-2022-011021

PATIENT
  Sex: Female

DRUGS (1)
  1. DEXTROMETHORPHAN HYDROBROMIDE\GUAIFENESIN [Suspect]
     Active Substance: DEXTROMETHORPHAN HYDROBROMIDE\GUAIFENESIN
     Indication: Product used for unknown indication
     Dosage: UNK, LAST NIGHT
     Route: 065

REACTIONS (4)
  - Syncope [Unknown]
  - Dizziness [Unknown]
  - Hypoaesthesia [Unknown]
  - Vision blurred [Unknown]

NARRATIVE: CASE EVENT DATE: 20220329
